FAERS Safety Report 24767301 (Version 1)
Quarter: 2024Q4

REPORT INFORMATION
  Report Type: Spontaneous
  Country: US (occurrence: US)
  Receive Date: 20241223
  Receipt Date: 20241223
  Transmission Date: 20250114
  Serious: No
  Sender: MERCK
  Company Number: US-009507513-2412USA006522

PATIENT
  Sex: Female
  Weight: 46.259 kg

DRUGS (17)
  1. WINREVAIR [Suspect]
     Active Substance: SOTATERCEPT-CSRK
     Indication: Product used for unknown indication
     Dosage: 1.8 MILLILITER
     Dates: start: 2024
  2. TYVASO DPI [Suspect]
     Active Substance: TREPROSTINIL
     Indication: Pulmonary arterial hypertension
     Dosage: 64 MICROGRAM, QID
     Dates: start: 20240619
  3. AMBRISENTAN [Concomitant]
     Active Substance: AMBRISENTAN
  4. MIDODRINE HYDROCHLORIDE [Concomitant]
     Active Substance: MIDODRINE HYDROCHLORIDE
  5. IBUPROFEN [Concomitant]
     Active Substance: IBUPROFEN
  6. TADALAFIL [Concomitant]
     Active Substance: TADALAFIL
  7. TYLENOL EXTRA STRENGTH [Concomitant]
     Active Substance: ACETAMINOPHEN
  8. BREZTRI [Concomitant]
     Active Substance: BUDESONIDE\FORMOTEROL\GLYCOPYRROLATE
  9. RAMELTEON [Concomitant]
     Active Substance: RAMELTEON
  10. XANAX [Concomitant]
     Active Substance: ALPRAZOLAM
  11. PROAIR HFA [Concomitant]
     Active Substance: ALBUTEROL SULFATE
  12. VENLAFAXINE HCL [Concomitant]
     Active Substance: VENLAFAXINE HYDROCHLORIDE
  13. ALPRAZOLAM [Concomitant]
     Active Substance: ALPRAZOLAM
  14. OXYGEN [Concomitant]
     Active Substance: OXYGEN
  15. ASPIRIN [Concomitant]
     Active Substance: ASPIRIN
  16. BUSPIRONE HCL [Concomitant]
     Active Substance: BUSPIRONE HYDROCHLORIDE
  17. FERROUS SULFATE [Concomitant]
     Active Substance: FERROUS SULFATE

REACTIONS (4)
  - Injection site laceration [Unknown]
  - Incorrect dose administered [Unknown]
  - Extra dose administered [Unknown]
  - Dose calculation error [Unknown]

NARRATIVE: CASE EVENT DATE: 20240101
